FAERS Safety Report 9034522 (Version 1)
Quarter: 2013Q1

REPORT INFORMATION
  Report Type: Spontaneous
  Country: FR (occurrence: FR)
  Receive Date: 20130128
  Receipt Date: 20130128
  Transmission Date: 20140127
  Serious: Yes (Hospitalization)
  Sender: FDA-Public Use
  Company Number: FR-TEVA-382656ISR

PATIENT
  Age: 60 Year
  Sex: Female
  Weight: 57 kg

DRUGS (6)
  1. GRANISETRON [Suspect]
     Indication: UTERINE CANCER
     Route: 042
     Dates: start: 20121205, end: 20121205
  2. SOLUMEDROL [Concomitant]
     Indication: UTERINE NEOPLASM
     Route: 042
  3. TAXOL [Concomitant]
     Indication: UTERINE NEOPLASM
     Route: 042
  4. CARBOPLATINE ACCORD [Concomitant]
     Indication: UTERINE NEOPLASM
     Route: 042
  5. POLARAMINE [Concomitant]
     Indication: UTERINE NEOPLASM
     Route: 042
  6. AZANTAC INJECTABLE 50MG/2ML, SOLUTION INJECTABLE EN AMPOULE [Concomitant]
     Indication: UTERINE NEOPLASM
     Route: 042

REACTIONS (3)
  - Abdominal pain [Unknown]
  - Renal pain [Unknown]
  - Pain in jaw [Unknown]
